FAERS Safety Report 5657878-3 (Version None)
Quarter: 2008Q1

REPORT INFORMATION
  Report Type: 
  Country: None (occurrence: None)
  Receive Date: 20080305
  Receipt Date: 20080217
  Transmission Date: 20080703
  Serious: Yes (Life-Threatening, Hospitalization, Disabling)
  Sender: FDA-Public Use
  Company Number: T07-JPN-00290-01

PATIENT
  Age: 77 Year
  Sex: Male
  Weight: 58 kg

DRUGS (9)
  1. MEMANTINE HCL [Suspect]
     Indication: DEMENTIA ALZHEIMER'S TYPE
     Dates: start: 20060802, end: 20070113
  2. ASPIRIN [Concomitant]
  3. SODIUM AZULENE SULFONATE SODIUM/L-GLUTAMINE [Concomitant]
  4. CILOSTAZOL [Concomitant]
  5. ANTIBIOTICS-RESISTANT LACTIC ACID BACTERIAE [Concomitant]
  6. NIFEDIPINE [Concomitant]
  7. ETHYL ICOSAPENTATE [Concomitant]
  8. RILMAZAFONE HYDROCHLORIDE (RILMAZAFONE) [Concomitant]
  9. WARFARIN SODIUM [Concomitant]

REACTIONS (10)
  - ACTIVATED PARTIAL THROMBOPLASTIN TIME PROLONGED [None]
  - ASPARTATE AMINOTRANSFERASE INCREASED [None]
  - BLOOD UREA INCREASED [None]
  - CARDIAC FAILURE [None]
  - CEREBELLAR INFARCTION [None]
  - CEREBRAL ATROPHY [None]
  - CEREBRAL HAEMORRHAGE [None]
  - HAEMOGLOBIN DECREASED [None]
  - MENINGITIS PNEUMOCOCCAL [None]
  - PATHOGEN RESISTANCE [None]
